FAERS Safety Report 13819524 (Version 3)
Quarter: 2017Q3

REPORT INFORMATION
  Report Type: Report from Study
  Country: US (occurrence: US)
  Receive Date: 20170801
  Receipt Date: 20170921
  Transmission Date: 20171127
  Serious: Yes (Death, Hospitalization, Other)
  Sender: FDA-Public Use
  Company Number: US-BAYER-2017-056450

PATIENT
  Age: 82 Year
  Sex: Male
  Weight: 74.83 kg

DRUGS (5)
  1. ADEMPAS [Suspect]
     Active Substance: RIOCIGUAT
     Indication: PULMONARY ARTERIAL HYPERTENSION
     Dosage: 0.5 MG, TID
     Route: 048
  2. ADEMPAS [Suspect]
     Active Substance: RIOCIGUAT
     Indication: PULMONARY ARTERIAL HYPERTENSION
     Dosage: UNK
     Dates: start: 20170503
  3. ADEMPAS [Suspect]
     Active Substance: RIOCIGUAT
     Indication: PULMONARY ARTERIAL HYPERTENSION
     Dosage: 2.5 MG, TID
     Route: 048
  4. ADEMPAS [Suspect]
     Active Substance: RIOCIGUAT
     Indication: PULMONARY ARTERIAL HYPERTENSION
     Dosage: UNK
     Route: 048
     Dates: start: 20170310
  5. ADEMPAS [Suspect]
     Active Substance: RIOCIGUAT
     Indication: PULMONARY ARTERIAL HYPERTENSION
     Dosage: 2.5 MG, TID
     Route: 048

REACTIONS (13)
  - Dehydration [Unknown]
  - Loss of consciousness [None]
  - Dyspnoea [Not Recovered/Not Resolved]
  - Hospitalisation [None]
  - Vomiting [Recovered/Resolved]
  - Death [Fatal]
  - Sepsis [Unknown]
  - Pulmonary arterial hypertension [Unknown]
  - Condition aggravated [None]
  - Oxygen saturation decreased [None]
  - Nausea [Not Recovered/Not Resolved]
  - Fluid retention [Unknown]
  - Oedema peripheral [None]

NARRATIVE: CASE EVENT DATE: 20170719
